FAERS Safety Report 8965103 (Version 1)
Quarter: 2012Q4

REPORT INFORMATION
  Report Type: 
  Country: US (occurrence: US)
  Receive Date: 20121213
  Receipt Date: 20121213
  Transmission Date: 20130627
  Serious: No
  Sender: FDA-Public Use
  Company Number: US-BRISTOL-MYERS SQUIBB COMPANY-17077538

PATIENT
  Age: 75 Year
  Sex: Female
  Weight: 68.48 kg

DRUGS (1)
  1. PRAVACHOL [Suspect]
     Dosage: Started 10-12 years ago.

REACTIONS (2)
  - Throat tightness [None]
  - Dyspnoea [None]
